FAERS Safety Report 23917390 (Version 1)
Quarter: 2024Q2

REPORT INFORMATION
  Report Type: Spontaneous
  Country: US (occurrence: US)
  Receive Date: 20240529
  Receipt Date: 20240529
  Transmission Date: 20240716
  Serious: Yes (Hospitalization)
  Sender: FDA-Public Use
  Company Number: US-BRISTOL-MYERS SQUIBB COMPANY-2024-083206

PATIENT
  Age: 49 Year
  Sex: Female

DRUGS (1)
  1. POMALYST [Suspect]
     Active Substance: POMALIDOMIDE
     Indication: Plasma cell myeloma
     Dosage: TAKE 1 CAPSULE BY MOUTH WHOLE WITH WATER EVERY DAY FOR 21 DAYS, FOLLOWEDBY 7 DAYS OFF. DO NOT BREAK,
     Route: 048

REACTIONS (3)
  - Infection [Unknown]
  - Chills [Unknown]
  - Pyrexia [Unknown]
